FAERS Safety Report 8415131-9 (Version None)
Quarter: 2012Q2

REPORT INFORMATION
  Report Type: 
  Country: None (occurrence: None)
  Receive Date: 20120606
  Receipt Date: 20120531
  Transmission Date: 20120825
  Serious: No
  Sender: FDA-Public Use
  Company Number: US-PFIZER INC-2012131652

PATIENT
  Sex: Female
  Weight: 77.1 kg

DRUGS (2)
  1. LIPITOR [Suspect]
     Indication: BLOOD CHOLESTEROL INCREASED
     Dosage: 20 MG, 1X/DAY
     Route: 048
     Dates: start: 20110901
  2. LIPITOR [Suspect]
     Dosage: 40MG EVERY OTHER DAY

REACTIONS (3)
  - MYALGIA [None]
  - MUSCLE FATIGUE [None]
  - ARTHRALGIA [None]
